FAERS Safety Report 22167914 (Version 1)
Quarter: 2023Q2

REPORT INFORMATION
  Report Type: Spontaneous
  Country: FR (occurrence: FR)
  Receive Date: 20230403
  Receipt Date: 20230403
  Transmission Date: 20230721
  Serious: Yes (Life-Threatening)
  Sender: FDA-Public Use
  Company Number: None

PATIENT
  Age: 87 Year
  Sex: Male
  Weight: 94.3 kg

DRUGS (3)
  1. METHOTREXATE (METHOTREXATE SODIUM) [Suspect]
     Active Substance: METHOTREXATE SODIUM
     Indication: Diffuse large B-cell lymphoma
     Dosage: 10 PER CENT (5 G/50 ML), UNIT DOSE: 3.76 GRAM, DURATION: 1 DAYS
     Route: 065
     Dates: start: 20230210, end: 20230210
  2. VINCRISTINE [Suspect]
     Active Substance: VINCRISTINE
     Indication: Diffuse large B-cell lymphoma
     Dosage: STRENGTH: 2 MG/2 ML, UNIT DOSE: 2MG, DURATION: 1 DAYS
     Route: 065
     Dates: start: 20230210, end: 20230210
  3. MABTHERA [Suspect]
     Active Substance: RITUXIMAB
     Indication: Diffuse large B-cell lymphoma
     Dosage: STRENGTH: 500 MG, UNIT DOSE: 807 MG, DURATION: 1 DAYS
     Route: 065
     Dates: start: 20230208, end: 20230208

REACTIONS (1)
  - Acute kidney injury [Recovering/Resolving]

NARRATIVE: CASE EVENT DATE: 20230211
